FAERS Safety Report 6821136-1 (Version None)
Quarter: 2010Q3

REPORT INFORMATION
  Report Type: 
  Country: None (occurrence: None)
  Receive Date: 20100707
  Receipt Date: 20080318
  Transmission Date: 20110219
  Serious: No
  Sender: FDA-Public Use
  Company Number: US-PFIZER INC-2008012932

PATIENT
  Sex: Female
  Weight: 63.5 kg

DRUGS (8)
  1. ZOLOFT [Suspect]
     Indication: DEPRESSION
     Route: 048
     Dates: start: 20020601
  2. ZOLOFT [Suspect]
     Indication: IRRITABLE BOWEL SYNDROME
  3. ADDERALL XR 10 [Suspect]
     Indication: MAJOR DEPRESSION
     Route: 048
     Dates: start: 20070801
  4. ADDERALL 10 [Concomitant]
  5. ACIPHEX [Concomitant]
  6. RHINOCORT [Concomitant]
     Route: 045
  7. ASTELIN [Concomitant]
     Route: 045
  8. NUVARING [Concomitant]
     Route: 067

REACTIONS (7)
  - ARTHRALGIA [None]
  - BURSITIS [None]
  - DEPRESSION [None]
  - HYPOAESTHESIA [None]
  - NEUROPATHY PERIPHERAL [None]
  - PARAESTHESIA [None]
  - SYNOVITIS [None]
